FAERS Safety Report 22811756 (Version 4)
Quarter: 2023Q4

REPORT INFORMATION
  Report Type: Report from Study
  Country: US (occurrence: US)
  Receive Date: 20230810
  Receipt Date: 20231117
  Transmission Date: 20240110
  Serious: No
  Sender: FDA-Public Use
  Company Number: US-ACADIA PHARMACEUTICALS INC.-ACA-2023-TRF-002992

PATIENT
  Age: 27 Year
  Sex: Female
  Weight: 52 kg

DRUGS (36)
  1. DAYBUE [Suspect]
     Active Substance: TROFINETIDE
     Indication: Rett syndrome
     Dosage: 60 MILLILITER, BID
     Route: 048
     Dates: start: 20230614, end: 202310
  2. HYDROXYZINE HYDROCHLORIDE [Concomitant]
     Active Substance: HYDROXYZINE HYDROCHLORIDE
     Indication: Agitation
     Dosage: 10 MILLIGRAM, 1 TO 2 TAB PRN
  3. HYDROXYZINE HYDROCHLORIDE [Concomitant]
     Active Substance: HYDROXYZINE HYDROCHLORIDE
     Indication: Seizure
  4. DEPAKOTE [Concomitant]
     Active Substance: DIVALPROEX SODIUM
  5. CETIRIZINE [Concomitant]
     Active Substance: CETIRIZINE HYDROCHLORIDE
  6. VIMPAT [Concomitant]
     Active Substance: LACOSAMIDE
     Indication: Seizure
     Dosage: 100 MILLIGRAM, BID
  7. NP THYROID [Concomitant]
     Active Substance: LEVOTHYROXINE\LIOTHYRONINE
     Indication: Thyroid disorder
     Dosage: 60 MILLIGRAM, QD
  8. LOVAZA [Concomitant]
     Active Substance: OMEGA-3-ACID ETHYL ESTERS
  9. VITAMIN D3 [Concomitant]
     Active Substance: CHOLECALCIFEROL
     Dosage: WEEKLY
  10. TRAZODONE [Concomitant]
     Active Substance: TRAZODONE HYDROCHLORIDE
     Indication: Sleep disorder
     Dosage: 75 MILLIGRAM AT BEDTIMES (ONE AND HALF TABLET)
  11. ADULT MULTIVITAMIN [Concomitant]
  12. SOLU-MEDROL [Concomitant]
     Active Substance: METHYLPREDNISOLONE SODIUM SUCCINATE
     Dosage: PF INJECTION
  13. ELYTE [Concomitant]
     Indication: Electrolyte imbalance
     Dosage: 1 CAPSULE IN 16 ML WATER, TWICE A DAY
     Dates: start: 2022
  14. IRON BIOMAX [Concomitant]
     Indication: Sleep disorder
     Dosage: 4 TIMES A WEEK
     Dates: start: 2022
  15. SELENIUM [Concomitant]
     Active Substance: SELENIUM
     Dosage: 3 TIMES A WEEK
     Dates: start: 202212
  16. ZINC [Concomitant]
     Active Substance: PYRITHIONE ZINC\ZINC\ZINC CHLORIDE
     Indication: Hormone level abnormal
     Dosage: 4 TIMES A WEEK
     Dates: start: 2022
  17. L-THREONINE [Concomitant]
     Indication: Restless legs syndrome
     Dosage: BID
     Dates: start: 2022
  18. MAGNESIUM CITRATE [Concomitant]
     Active Substance: MAGNESIUM CITRATE
     Indication: Constipation
     Dosage: IN THE AM
     Dates: start: 2022, end: 2023
  19. candisol [Concomitant]
     Indication: Fungal infection
     Dosage: BID
     Dates: start: 202306
  20. candisol [Concomitant]
     Indication: Gastrointestinal disorder
  21. XIFAXAN [Concomitant]
     Active Substance: RIFAXIMIN
  22. ATARAX [Concomitant]
     Active Substance: HYDROXYZINE HYDROCHLORIDE
     Indication: Sleep disorder
     Dosage: 1 TO 2 AT BEDTIME, ONCE DAILY
  23. MOMETASONE FUROATE [Concomitant]
     Active Substance: MOMETASONE FUROATE
     Indication: Hypersensitivity
     Dosage: 2 SPRAYS PRN
  24. MOMETASONE FUROATE [Concomitant]
     Active Substance: MOMETASONE FUROATE
     Indication: Agitation
  25. PHENOBARBITAL [Concomitant]
     Active Substance: PHENOBARBITAL
     Indication: Seizure
     Dosage: 8 MILLIGRAM, TID 6 PERCENT AT BEDTIMES
  26. CETIRIZINE HYDROCHLORIDE [Concomitant]
     Active Substance: CETIRIZINE HYDROCHLORIDE
     Indication: Hypersensitivity
     Dosage: 10 MILLIGRAM DAILY
  27. CETIRIZINE HYDROCHLORIDE [Concomitant]
     Active Substance: CETIRIZINE HYDROCHLORIDE
     Indication: Agitation
  28. DEPAKOTE [Concomitant]
     Active Substance: DIVALPROEX SODIUM
     Indication: Seizure
     Dosage: 125 MILLIGRAM
  29. EPIDIOLEX [Concomitant]
     Active Substance: CANNABIDIOL
     Indication: Seizure
     Dosage: 2 ML AM AND 5 ML AT BEDTIMES
     Dates: start: 2019
  30. FISH OIL\OMEGA-3 FATTY ACIDS [Concomitant]
     Active Substance: FISH OIL\OMEGA-3 FATTY ACIDS
     Indication: Antiinflammatory therapy
     Dosage: TWICE A DAY
  31. FISH OIL\OMEGA-3 FATTY ACIDS [Concomitant]
     Active Substance: FISH OIL\OMEGA-3 FATTY ACIDS
     Indication: Immune system disorder
  32. PROGESTERONE [Concomitant]
     Active Substance: PROGESTERONE
     Indication: Epilepsy
     Dosage: 100 MILLIGRAM, QD
  33. LEVOCARNITINE [Concomitant]
     Active Substance: LEVOCARNITINE
     Indication: Hyperammonaemia
     Dosage: 3 TIMES A DAY
  34. FLUVOXAMINE [Concomitant]
     Active Substance: FLUVOXAMINE
     Indication: COVID-19
     Dosage: AT BEDTIMES
     Dates: start: 2021
  35. FLUVOXAMINE [Concomitant]
     Active Substance: FLUVOXAMINE
     Indication: Sleep disorder
  36. LAMOTRIGINE [Concomitant]
     Active Substance: LAMOTRIGINE

REACTIONS (4)
  - Therapeutic response unexpected [Not Recovered/Not Resolved]
  - Bone lesion excision [Unknown]
  - Insomnia [Unknown]
  - Diarrhoea [Not Recovered/Not Resolved]

NARRATIVE: CASE EVENT DATE: 20230701
